FAERS Safety Report 10238304 (Version 1)
Quarter: 2014Q2

REPORT INFORMATION
  Report Type: Spontaneous
  Country: PT (occurrence: PT)
  Receive Date: 20140616
  Receipt Date: 20140616
  Transmission Date: 20141212
  Serious: Yes (Other)
  Sender: FDA-Public Use
  Company Number: PT-JNJFOC-20140607413

PATIENT
  Age: 69 Year
  Sex: Female

DRUGS (2)
  1. PALEXIA RETARD [Suspect]
     Indication: INJURY
     Route: 048
  2. TRIDURAL [Concomitant]
     Indication: PRODUCT USED FOR UNKNOWN INDICATION
     Route: 065

REACTIONS (3)
  - Abdominal distension [Unknown]
  - Oedema peripheral [Unknown]
  - Headache [Unknown]
